FAERS Safety Report 19139294 (Version 1)
Quarter: 2021Q2

REPORT INFORMATION
  Report Type: Spontaneous
  Country: US (occurrence: US)
  Receive Date: 20210415
  Receipt Date: 20210415
  Transmission Date: 20210717
  Serious: No
  Sender: FDA-Public Use
  Company Number: None

PATIENT
  Age: 52 Year
  Sex: Female
  Weight: 89.55 kg

DRUGS (7)
  1. TRIAM/HCTZ [Concomitant]
     Active Substance: HYDROCHLOROTHIAZIDE\TRIAMTERENE
  2. ADDERALL [Concomitant]
     Active Substance: AMPHETAMINE ASPARTATE\AMPHETAMINE SULFATE\DEXTROAMPHETAMINE SACCHARATE\DEXTROAMPHETAMINE SULFATE
  3. BAMLANIVIMAB AND ETESEVIMAB [Suspect]
     Active Substance: BAMLANIVIMAB\ETESEVIMAB
     Indication: COVID-19
     Dosage: ?          OTHER FREQUENCY:ONE TIME;?
     Route: 042
     Dates: start: 20210413, end: 20210413
  4. AMLODIPINE [Concomitant]
     Active Substance: AMLODIPINE BESYLATE
  5. POTASSIUM [Concomitant]
     Active Substance: POTASSIUM
  6. SYNTHROID [Concomitant]
     Active Substance: LEVOTHYROXINE SODIUM
  7. EMERGEN C [Concomitant]
     Active Substance: MINERALS\VITAMINS

REACTIONS (12)
  - Dizziness [None]
  - Rash [None]
  - Headache [None]
  - Chills [None]
  - Dyspnoea [None]
  - Asthenia [None]
  - Infusion related reaction [None]
  - Pruritus [None]
  - Cough [None]
  - Hyperhidrosis [None]
  - Myalgia [None]
  - Hypersensitivity [None]

NARRATIVE: CASE EVENT DATE: 20210414
